FAERS Safety Report 9287926 (Version 1)
Quarter: 2013Q2

REPORT INFORMATION
  Report Type: Spontaneous
  Country: US (occurrence: None)
  Receive Date: 20130513
  Receipt Date: 20130513
  Transmission Date: 20140414
  Serious: Yes (Other)
  Sender: FDA-Public Use
  Company Number: None

PATIENT
  Sex: Female
  Weight: 66.23 kg

DRUGS (1)
  1. LEVETIRACETAM [Suspect]
     Route: 048

REACTIONS (4)
  - Convulsion [None]
  - Complex partial seizures [None]
  - Simple partial seizures [None]
  - Product substitution issue [None]
